FAERS Safety Report 6987321-3 (Version None)
Quarter: 2010Q3

REPORT INFORMATION
  Report Type: 
  Country: None (occurrence: None)
  Receive Date: 20100916
  Receipt Date: 20100907
  Transmission Date: 20110219
  Serious: Yes (Hospitalization)
  Sender: FDA-Public Use
  Company Number: RS-WYE-H17398910

PATIENT
  Sex: Male
  Weight: 68 kg

DRUGS (11)
  1. TEMSIROLIMUS [Suspect]
     Indication: RENAL CELL CARCINOMA
     Route: 042
     Dates: start: 20091029, end: 20100812
  2. CODEINE [Concomitant]
     Indication: COUGH
     Dosage: NOT PROVIDED
     Route: 065
     Dates: start: 20100805, end: 20100903
  3. ACETYLSALICYLIC ACID [Concomitant]
     Dosage: NOT PROVIDED
     Route: 065
     Dates: start: 20091224, end: 20100903
  4. PERINDOPRIL [Concomitant]
     Indication: HYPERTENSION
     Dosage: NOT PROVIDED
     Route: 065
     Dates: start: 20091224
  5. BISOPROLOL [Concomitant]
     Indication: HYPERTENSION
     Dosage: NOT PROVIDED
     Route: 065
     Dates: start: 20091224
  6. ROSUVASTATIN [Concomitant]
     Indication: HYPERTRIGLYCERIDAEMIA
     Dosage: NOT PROVIDED
     Route: 065
     Dates: start: 20091224, end: 20100903
  7. ROSUVASTATIN [Concomitant]
     Indication: HYPERCHOLESTEROLAEMIA
  8. PANTOTHENIC ACID [Concomitant]
     Dosage: NOT PROVIDED
     Route: 065
     Dates: start: 20100408, end: 20100903
  9. PANTHENOL [Concomitant]
     Dosage: NOT PROVIDED
     Route: 065
     Dates: start: 20100408, end: 20100903
  10. BEVACIZUMAB [Suspect]
     Indication: RENAL CELL CARCINOMA
     Route: 042
     Dates: start: 20091029, end: 20100722
  11. FELODIPINE [Concomitant]
     Indication: HYPERTENSION
     Dosage: NOT PROVIDED
     Route: 065
     Dates: start: 20091224

REACTIONS (3)
  - CONDITION AGGRAVATED [None]
  - HYPERTENSION [None]
  - NEPHROTIC SYNDROME [None]
